FAERS Safety Report 21039762 (Version 3)
Quarter: 2023Q1

REPORT INFORMATION
  Report Type: Report from Study
  Country: US (occurrence: US)
  Receive Date: 20220704
  Receipt Date: 20230110
  Transmission Date: 20230418
  Serious: No
  Sender: FDA-Public Use
  Company Number: US-KYOWAKIRIN-2022BKK010054

PATIENT

DRUGS (5)
  1. CRYSVITA [Suspect]
     Active Substance: BUROSUMAB-TWZA
     Indication: Hereditary hypophosphataemic rickets
     Dosage: 5 MG, 1X/2 WEEKS
     Route: 065
     Dates: start: 20200707, end: 20210301
  2. CRYSVITA [Suspect]
     Active Substance: BUROSUMAB-TWZA
     Dosage: 5 MG, 1X/2 WEEKS
     Route: 065
     Dates: start: 20210831
  3. CRYSVITA [Suspect]
     Active Substance: BUROSUMAB-TWZA
     Dosage: 5 MG
     Route: 065
     Dates: start: 20220111
  4. CRYSVITA [Suspect]
     Active Substance: BUROSUMAB-TWZA
     Indication: Hereditary hypophosphataemic rickets
     Dosage: 5 MG, 1X/2 WEEKS
     Route: 058
  5. VITAMIN D NOS [Concomitant]
     Active Substance: VITAMIN D NOS
     Indication: Product used for unknown indication
     Dosage: 10 UG (400)
     Route: 065

REACTIONS (7)
  - COVID-19 [Recovering/Resolving]
  - Constipation [Unknown]
  - Injection site pain [Unknown]
  - Muscle spasms [Unknown]
  - Incorrect dose administered [Unknown]
  - Inappropriate schedule of product administration [Unknown]
  - Emergency care [Unknown]

NARRATIVE: CASE EVENT DATE: 20220801
